FAERS Safety Report 23241122 (Version 2)
Quarter: 2025Q3

REPORT INFORMATION
  Report Type: Spontaneous
  Country: EU (occurrence: EU)
  Receive Date: 20231129
  Receipt Date: 20250821
  Transmission Date: 20251020
  Serious: Yes (Death, Life-Threatening, Hospitalization, Disabling, Other)
  Sender: BIOVITRUM
  Company Number: EU-BIOVITRUM-2023-DK-019160

PATIENT
  Age: 36 Year
  Sex: Male
  Weight: 100 kg

DRUGS (17)
  1. GAMIFANT [Suspect]
     Active Substance: EMAPALUMAB-LZSG
     Indication: Haemophagocytic lymphohistiocytosis
     Dates: end: 20231124
  2. GAMIFANT [Suspect]
     Active Substance: EMAPALUMAB-LZSG
     Indication: Haemophagocytic lymphohistiocytosis
  3. GAMIFANT [Suspect]
     Active Substance: EMAPALUMAB-LZSG
     Indication: Haemophagocytic lymphohistiocytosis
  4. ANAKINRA [Suspect]
     Active Substance: ANAKINRA
     Indication: Still^s disease
  5. ANAKINRA [Suspect]
     Active Substance: ANAKINRA
  6. ANAKINRA [Suspect]
     Active Substance: ANAKINRA
     Dates: end: 20231126
  7. ANAKINRA [Suspect]
     Active Substance: ANAKINRA
     Dates: end: 20231120
  8. SOLU-MEDROL [Concomitant]
     Active Substance: METHYLPREDNISOLONE SODIUM SUCCINATE
     Indication: Product used for unknown indication
  9. PANTOPRAZOL ^MYLAN^ [Concomitant]
     Indication: Product used for unknown indication
  10. INNOHEP [Concomitant]
     Active Substance: TINZAPARIN SODIUM
     Indication: Product used for unknown indication
  11. HUMAN ALBUMIN ^CSL BEHRING^ [Concomitant]
     Indication: Product used for unknown indication
  12. VANCOCIN [Concomitant]
     Active Substance: VANCOMYCIN HYDROCHLORIDE
     Indication: Product used for unknown indication
  13. FUROSEMID ^ACCORD^ [Concomitant]
     Indication: Product used for unknown indication
  14. TARGOCID [Concomitant]
     Active Substance: TEICOPLANIN
     Indication: Product used for unknown indication
  15. MEROPENEM ^BRADEX^ [Concomitant]
     Indication: Product used for unknown indication
  16. ACYCLOVIR [Concomitant]
     Active Substance: ACYCLOVIR
     Indication: Product used for unknown indication
  17. PARACETAMOL ^B. BRAUN^ [Concomitant]
     Indication: Product used for unknown indication

REACTIONS (11)
  - Gastrointestinal haemorrhage [Unknown]
  - Colitis [Fatal]
  - Cardiac arrest [Recovered/Resolved]
  - Rash [Fatal]
  - Off label use [Unknown]
  - Pancreatitis [Fatal]
  - Haemorrhagic diathesis [Fatal]
  - Gastrointestinal haemorrhage [Recovering/Resolving]
  - Septic shock [Fatal]
  - Cardiac arrest [Recovered/Resolved]
  - Candida infection [Fatal]

NARRATIVE: CASE EVENT DATE: 20230101
